FAERS Safety Report 16279965 (Version 1)
Quarter: 2019Q2

REPORT INFORMATION
  Report Type: Report from Study
  Country: US (occurrence: US)
  Receive Date: 20190507
  Receipt Date: 20190507
  Transmission Date: 20190711
  Serious: Yes (Hospitalization)
  Sender: FDA-Public Use
  Company Number: US-ROCHE-2310563

PATIENT
  Age: 73 Year
  Sex: Male

DRUGS (37)
  1. BLINDED QPI-1002 [Suspect]
     Active Substance: TEPRASIRAN
     Indication: DELAYED GRAFT FUNCTION
     Route: 042
  2. RED BLOOD CELLS [Concomitant]
     Active Substance: HUMAN RED BLOOD CELL
  3. LASIX [Concomitant]
     Active Substance: FUROSEMIDE
  4. HEPARIN [Concomitant]
     Active Substance: HEPARIN SODIUM
  5. PERCOCET [Concomitant]
     Active Substance: ACETAMINOPHEN\OXYCODONE HYDROCHLORIDE
  6. APRESOLINE HYDROCHLORIDE [Concomitant]
     Active Substance: HYDRALAZINE HYDROCHLORIDE
  7. PHOSLO [Concomitant]
     Active Substance: CALCIUM ACETATE
  8. COREG [Concomitant]
     Active Substance: CARVEDILOL
  9. MAG-OX [Concomitant]
     Active Substance: MAGNESIUM OXIDE
  10. BACTRIM [Concomitant]
     Active Substance: SULFAMETHOXAZOLE\TRIMETHOPRIM
  11. CALCIUM CHLORIDE. [Concomitant]
     Active Substance: CALCIUM CHLORIDE
  12. ALBUTEROL [SALBUTAMOL] [Concomitant]
     Active Substance: ALBUTEROL
  13. PROGRAF [Concomitant]
     Active Substance: TACROLIMUS\TACROLIMUS ANHYDROUS
  14. MYFORTIC [Concomitant]
     Active Substance: MYCOPHENOLATE SODIUM
  15. PROTONIX [Concomitant]
     Active Substance: PANTOPRAZOLE SODIUM
  16. ANCEF [Concomitant]
     Active Substance: CEFAZOLIN SODIUM
  17. THYMOGLOBULIN [Concomitant]
     Active Substance: LAPINE T-LYMPHOCYTE IMMUNE GLOBULIN
  18. PEPCID [Concomitant]
     Active Substance: FAMOTIDINE
  19. HUMULIN NOS [Concomitant]
     Active Substance: INSULIN HUMAN
  20. SOLU-MEDROL [Concomitant]
     Active Substance: METHYLPREDNISOLONE SODIUM SUCCINATE
  21. NYSTATIN. [Concomitant]
     Active Substance: NYSTATIN
  22. VALCYTE [Concomitant]
     Active Substance: VALGANCICLOVIR HYDROCHLORIDE
  23. ASPIRIN [ACETYLSALICYLIC ACID] [Concomitant]
     Active Substance: ASPIRIN
  24. MYCOPHENOLATE MOFETIL. [Suspect]
     Active Substance: MYCOPHENOLATE MOFETIL
     Indication: IMMUNOSUPPRESSION
     Route: 065
  25. NOVOLOG [Concomitant]
     Active Substance: INSULIN ASPART
  26. NORMODYNE [Concomitant]
     Active Substance: LABETALOL HYDROCHLORIDE
  27. ADALAT CC [Concomitant]
     Active Substance: NIFEDIPINE
  28. SENOKOT-S [Concomitant]
     Active Substance: DOCUSATE SODIUM\SENNOSIDES
  29. LOPRESSOR [Concomitant]
     Active Substance: METOPROLOL TARTRATE
  30. CARAFATE [Concomitant]
     Active Substance: SUCRALFATE
  31. NORCO [Concomitant]
     Active Substance: ACETAMINOPHEN\HYDROCODONE BITARTRATE
  32. MANNITOL. [Concomitant]
     Active Substance: MANNITOL
  33. BENADRYL [Concomitant]
     Active Substance: DIPHENHYDRAMINE HYDROCHLORIDE
  34. ZOCOR [Concomitant]
     Active Substance: SIMVASTATIN
  35. TYLENOL [Concomitant]
     Active Substance: ACETAMINOPHEN
  36. NACL [Concomitant]
     Active Substance: SODIUM CHLORIDE
  37. PROCARDIA [NIFEDIPINE] [Concomitant]

REACTIONS (1)
  - Duodenitis [Recovered/Resolved]

NARRATIVE: CASE EVENT DATE: 20160620
